FAERS Safety Report 11660841 (Version 1)
Quarter: 2015Q4

REPORT INFORMATION
  Report Type: Spontaneous
  Country: US (occurrence: US)
  Receive Date: 20151026
  Receipt Date: 20151026
  Transmission Date: 20160304
  Serious: No
  Sender: FDA-Public Use
  Company Number: US-MEDA-2011110144

PATIENT
  Age: 89 Year
  Sex: Female
  Weight: 45 kg

DRUGS (4)
  1. ASTEPRO [Suspect]
     Active Substance: AZELASTINE HYDROCHLORIDE
     Indication: CHRONIC SINUSITIS
     Dates: start: 20111119, end: 20111119
  2. MULTIVITAMIN [Concomitant]
     Active Substance: VITAMINS
     Route: 048
  3. ASTEPRO [Suspect]
     Active Substance: AZELASTINE HYDROCHLORIDE
     Indication: RHINITIS
     Dates: start: 20111119, end: 20111119
  4. BYSTOLIC [Concomitant]
     Active Substance: NEBIVOLOL HYDROCHLORIDE
     Route: 048

REACTIONS (4)
  - Headache [Recovered/Resolved]
  - Hypertension [Recovered/Resolved]
  - Heart rate irregular [Recovered/Resolved]
  - Nasal discomfort [Recovered/Resolved]

NARRATIVE: CASE EVENT DATE: 20111119
